FAERS Safety Report 15695825 (Version 1)
Quarter: 2018Q4

REPORT INFORMATION
  Report Type: Spontaneous
  Country: FR (occurrence: FR)
  Receive Date: 20181206
  Receipt Date: 20181206
  Transmission Date: 20190205
  Serious: Yes (Hospitalization)
  Sender: FDA-Public Use
  Company Number: FR-TEVA-2018-FR-982157

PATIENT
  Age: 74 Year
  Sex: Male
  Weight: 72 kg

DRUGS (10)
  1. ATORVASTATINE [Concomitant]
     Active Substance: ATORVASTATIN
  2. LOVENOX [Concomitant]
     Active Substance: ENOXAPARIN SODIUM
  3. POSACONAZOLE [Concomitant]
     Active Substance: POSACONAZOLE
  4. CIPROFLOXACINE [Suspect]
     Active Substance: CIPROFLOXACIN
     Indication: PSEUDOMONAS INFECTION
     Dosage: 800 MILLIGRAM DAILY;
     Route: 041
     Dates: start: 20181001, end: 20181017
  5. SPIRIVA [Concomitant]
     Active Substance: TIOTROPIUM BROMIDE MONOHYDRATE
  6. ALLOPURINOL. [Concomitant]
     Active Substance: ALLOPURINOL
  7. HEMIGOXINE NATIVELLE [Suspect]
     Active Substance: DIGOXIN
     Indication: ATRIAL FIBRILLATION
     Dosage: 1 DOSAGE FORMS DAILY;
     Route: 048
     Dates: end: 20181017
  8. FUROSEMIDE. [Concomitant]
     Active Substance: FUROSEMIDE
  9. FORTUM 2 G, POUDRE POUR SOLUTION INJECTABLE (IV) [Suspect]
     Active Substance: CEFTAZIDIME
     Indication: PSEUDOMONAS INFECTION
     Dosage: 6 GRAM DAILY;
     Route: 041
     Dates: start: 20181001, end: 20181017
  10. SERETIDE [Concomitant]
     Active Substance: FLUTICASONE PROPIONATE\SALMETEROL XINAFOATE

REACTIONS (3)
  - Bradycardia [Recovered/Resolved]
  - Confusional state [Recovered/Resolved]
  - Hallucination [Recovered/Resolved]

NARRATIVE: CASE EVENT DATE: 201810
